FAERS Safety Report 7524528-0 (Version None)
Quarter: 2011Q2

REPORT INFORMATION
  Report Type: 
  Country: None (occurrence: None)
  Receive Date: 20110606
  Receipt Date: 20110524
  Transmission Date: 20111010
  Serious: Yes (Hospitalization, Other)
  Sender: FDA-Public Use
  Company Number: US-BAYER-201010681NA

PATIENT
  Age: 22 Year
  Sex: Female
  Weight: 78.182 kg

DRUGS (14)
  1. TOPAMAX [Concomitant]
     Dates: start: 20090203
  2. YASMIN [Suspect]
     Indication: CONTRACEPTION
     Route: 048
     Dates: start: 20080101, end: 20081106
  3. MIDRIN [Concomitant]
  4. FIORINAL [Concomitant]
  5. ASPIRIN [Concomitant]
     Route: 048
  6. FENTANYL [Concomitant]
     Dates: start: 20081107
  7. ANTIEMETICS AND ANTINAUSEANTS [Concomitant]
  8. HYDROMORPHONE HCL [Concomitant]
  9. ELAVIL [Concomitant]
  10. BENTYL [Concomitant]
  11. ACETAMINOPHEN [Concomitant]
  12. CITALOPRAM HYDROBROMIDE [Concomitant]
     Indication: ASTHMA
  13. FIORICET [Concomitant]
  14. CITALOPRAM HYDROBROMIDE [Concomitant]
     Indication: MIGRAINE

REACTIONS (9)
  - VOMITING [None]
  - TINNITUS [None]
  - NAUSEA [None]
  - HEADACHE [None]
  - DIZZINESS [None]
  - INTRACRANIAL VENOUS SINUS THROMBOSIS [None]
  - PHOTOPHOBIA [None]
  - COLITIS [None]
  - ABDOMINAL PAIN LOWER [None]
